FAERS Safety Report 12499054 (Version 2)
Quarter: 2019Q2

REPORT INFORMATION
  Report Type: Report from Study
  Country: US (occurrence: US)
  Receive Date: 20160627
  Receipt Date: 20190626
  Transmission Date: 20190711
  Serious: Yes (Death, Hospitalization)
  Sender: FDA-Public Use
  Company Number: US-ROCHE-1762734

PATIENT
  Age: 69 Year
  Sex: Female
  Weight: 52.1 kg

DRUGS (14)
  1. PERTUZUMAB. [Suspect]
     Active Substance: PERTUZUMAB
     Dosage: THE MOST RECENT DOSE RECIEVD ON 29/FEB/2016?MAINTENACE DOSE
     Route: 042
  2. GEMCITABINE [Suspect]
     Active Substance: GEMCITABINE\GEMCITABINE HYDROCHLORIDE
     Indication: HER-2 POSITIVE BREAST CANCER
     Dosage: 1200MG/M2 D1, 8 EVERY 21 DAYS (DOSE LEVEL -0), 1000MG/M2 (DOSE LEVEL -1) AND 850MG/M2 (DOSE LEVEL -2
     Route: 042
  3. PAROXETINE. [Concomitant]
     Active Substance: PAROXETINE
     Route: 048
  4. TRASTUZUMAB. [Suspect]
     Active Substance: TRASTUZUMAB
     Indication: BREAST CANCER METASTATIC
     Dosage: LOADING DOSE?AS PER PROTOCOL
     Route: 042
     Dates: start: 20151019
  5. ATIVAN [Concomitant]
     Active Substance: LORAZEPAM
     Dosage: AS REUIRED
     Route: 048
  6. BENADRYL [Concomitant]
     Active Substance: DIPHENHYDRAMINE HYDROCHLORIDE
     Dosage: AS REQUIRED
     Route: 048
  7. FISH OIL [Concomitant]
     Active Substance: FISH OIL
     Route: 048
  8. PERTUZUMAB. [Suspect]
     Active Substance: PERTUZUMAB
     Indication: BREAST CANCER METASTATIC
     Dosage: THE MOST RECENT DOSE RECIEVD ON 29/FEB/2016?LOADING DOSE?AS PER PROTOCOL
     Route: 042
     Dates: start: 20151019
  9. CARVEDILOL. [Concomitant]
     Active Substance: CARVEDILOL
     Route: 048
  10. ZOFRAN [Concomitant]
     Active Substance: ONDANSETRON HYDROCHLORIDE
     Route: 048
  11. TRASTUZUMAB. [Suspect]
     Active Substance: TRASTUZUMAB
     Dosage: THE MOST RECENT DOSE RECIEVD ON 29/FEB/2016?6 MG/KG?MAINTENANCE DOSE
     Route: 042
  12. LACTOBACILLUS [Concomitant]
     Active Substance: LACTOBACILLUS ACIDOPHILUS
     Dosage: 1 CAPSULE
     Route: 048
  13. LISINOPRIL. [Concomitant]
     Active Substance: LISINOPRIL
     Route: 048
  14. POTASSIUM CHLORIDE. [Concomitant]
     Active Substance: POTASSIUM CHLORIDE
     Route: 048

REACTIONS (2)
  - Death [Fatal]
  - Cardiac arrest [Recovered/Resolved]

NARRATIVE: CASE EVENT DATE: 20160315
